FAERS Safety Report 6156489-3 (Version None)
Quarter: 2009Q2

REPORT INFORMATION
  Report Type: 
  Country: None (occurrence: None)
  Receive Date: 20090416
  Receipt Date: 20090408
  Transmission Date: 20091009
  Serious: Yes (Other)
  Sender: FDA-Public Use
  Company Number: BR-ASTRAZENECA-2009UW09038

PATIENT
  Age: 54 Year
  Sex: Female
  Weight: 76.2 kg

DRUGS (5)
  1. SELOZOK [Suspect]
     Indication: MITRAL VALVE PROLAPSE
     Route: 048
     Dates: start: 20060101, end: 20081201
  2. SELOZOK [Suspect]
     Route: 048
     Dates: start: 20081201
  3. CALCIUM + VITAMIN D [Concomitant]
     Indication: CALCIUM DEFICIENCY
     Route: 048
  4. ALENDRONATE SODIUM [Concomitant]
     Route: 048
  5. SANDRENA GEL [Concomitant]
     Indication: HORMONE REPLACEMENT THERAPY
     Route: 048
     Dates: start: 20000101

REACTIONS (8)
  - ASTHENIA [None]
  - DRY EYE [None]
  - EYE HAEMORRHAGE [None]
  - FATIGUE [None]
  - HEART RATE IRREGULAR [None]
  - MACULOPATHY [None]
  - SOMNOLENCE [None]
  - VISION BLURRED [None]
